FAERS Safety Report 20311016 (Version 2)
Quarter: 2022Q1

REPORT INFORMATION
  Report Type: Report from Study
  Country: FR (occurrence: FR)
  Receive Date: 20220107
  Receipt Date: 20220217
  Transmission Date: 20220424
  Serious: Yes (Hospitalization, Other)
  Sender: FDA-Public Use
  Company Number: FR-AMGEN-FRANI2021208816

PATIENT
  Age: 70 Year
  Sex: Female

DRUGS (4)
  1. AMG-510 [Suspect]
     Active Substance: AMG-510
     Indication: Non-small cell lung cancer metastatic
     Dosage: UNK
     Route: 048
     Dates: end: 20210616
  2. AMG-510 [Suspect]
     Active Substance: AMG-510
     Indication: K-ras gene mutation
     Dosage: UNK
     Route: 048
     Dates: start: 20210701
  3. AMG-510 [Suspect]
     Active Substance: AMG-510
     Dosage: 960 MILLIGRAM, QD
     Route: 048
     Dates: start: 20211103
  4. AMG-510 [Suspect]
     Active Substance: AMG-510
     Dosage: 480 MILLIGRAM, QD (4 TABLETS)
     Route: 048

REACTIONS (2)
  - Hepatic cytolysis [Recovered/Resolved]
  - Hepatitis cholestatic [Recovered/Resolved]

NARRATIVE: CASE EVENT DATE: 20211121
